FAERS Safety Report 18898558 (Version 6)
Quarter: 2022Q1

REPORT INFORMATION
  Report Type: Report from Study
  Country: TH (occurrence: None)
  Receive Date: 20210216
  Receipt Date: 20220128
  Transmission Date: 20220423
  Serious: Yes (Hospitalization, Other)
  Sender: FDA-Public Use
  Company Number: TH-ROCHE-2628065

PATIENT
  Age: 81 Year
  Sex: Female
  Weight: 44 kg

DRUGS (55)
  1. IPATASERTIB [Suspect]
     Active Substance: IPATASERTIB
     Indication: Triple negative breast cancer
     Dosage: DATE OF MOST RECENT DOSE OF IPATASERTIB PRIOR TO AE ONSET 15/JUN/2020?DATE OF MOST RECENT DOSE OF IP
     Route: 048
     Dates: start: 20200612
  2. ATEZOLIZUMAB [Suspect]
     Active Substance: ATEZOLIZUMAB
     Indication: Triple negative breast cancer
     Dosage: DATE OF MOST RECENT DOSE OF ATEZOLIZUMAB PRIOR TO SAE ONSET: 12/JUN/2020 AT 12:00?DATE OF MOST RECEN
     Route: 041
     Dates: start: 20200612
  3. PACLITAXEL [Suspect]
     Active Substance: PACLITAXEL
     Indication: Triple negative breast cancer
     Dosage: DATE OF MOST RECENT DOSE (80 MG/M2) OF PACLITAXEL PRIOR TO SAE ONSET: 12/JUN/2020 AT 13:15?DATE OF M
     Route: 042
     Dates: start: 20200612
  4. AMLODIPINE [Concomitant]
     Active Substance: AMLODIPINE BESYLATE
     Indication: Hypotension
     Route: 048
  5. SIMVASTATIN [Concomitant]
     Active Substance: SIMVASTATIN
     Dosage: TO LOWER LIPID PRODUCTION.
     Route: 048
  6. METOCLOPRAMIDE HYDROCHLORIDE [Concomitant]
     Active Substance: METOCLOPRAMIDE HYDROCHLORIDE
     Indication: Nausea
     Route: 048
     Dates: start: 20200612
  7. METOCLOPRAMIDE HYDROCHLORIDE [Concomitant]
     Active Substance: METOCLOPRAMIDE HYDROCHLORIDE
     Indication: Vomiting
  8. ATIVAN [Concomitant]
     Active Substance: LORAZEPAM
     Indication: Nausea
     Route: 048
     Dates: start: 20200612
  9. TRAMADOL [Concomitant]
     Active Substance: TRAMADOL
     Indication: Pain
     Route: 048
     Dates: start: 20200612
  10. SENOKOT [Concomitant]
     Active Substance: SENNOSIDES
     Indication: Constipation
     Route: 048
     Dates: start: 20200612
  11. PREDNISOLONE [Concomitant]
     Active Substance: PREDNISOLONE
     Indication: Rash
     Route: 048
     Dates: start: 20200612, end: 20200614
  12. PREDNISOLONE [Concomitant]
     Active Substance: PREDNISOLONE
     Indication: Antiinflammatory therapy
  13. CETIRIZINE [Concomitant]
     Active Substance: CETIRIZINE HYDROCHLORIDE
     Indication: Hypersensitivity
     Route: 048
     Dates: start: 20200612
  14. CETIRIZINE [Concomitant]
     Active Substance: CETIRIZINE HYDROCHLORIDE
     Route: 048
     Dates: start: 20200710
  15. LOPERAMIDE [Concomitant]
     Active Substance: LOPERAMIDE
     Indication: Diarrhoea
     Route: 048
     Dates: start: 20200612
  16. LOPERAMIDE [Concomitant]
     Active Substance: LOPERAMIDE
     Route: 048
     Dates: start: 20200710
  17. DEXAMETHASONE [Concomitant]
     Active Substance: DEXAMETHASONE
     Indication: Hypersensitivity
     Route: 042
     Dates: start: 20200612, end: 20210120
  18. DEXAMETHASONE [Concomitant]
     Active Substance: DEXAMETHASONE
     Indication: Neoplasm malignant
     Dates: start: 20200716, end: 20200716
  19. ONDANSETRON [Concomitant]
     Active Substance: ONDANSETRON
     Indication: Nausea
     Route: 042
     Dates: start: 20200612, end: 20210120
  20. ONDANSETRON [Concomitant]
     Active Substance: ONDANSETRON
     Route: 042
     Dates: start: 20200710, end: 20200710
  21. DIPHENHYDRAMINE [Concomitant]
     Active Substance: DIPHENHYDRAMINE
     Indication: Hypersensitivity
     Route: 048
     Dates: start: 20200612, end: 20210120
  22. DIPHENHYDRAMINE [Concomitant]
     Active Substance: DIPHENHYDRAMINE
     Route: 048
     Dates: start: 20200710, end: 20200710
  23. TRANAVAN [Concomitant]
     Indication: Insomnia
     Route: 048
     Dates: start: 20200619
  24. TRANAVAN [Concomitant]
     Indication: Anxiety
  25. MOLAX-M [Concomitant]
     Indication: Vomiting
     Route: 048
     Dates: start: 20200619, end: 20210624
  26. MOLAX-M [Concomitant]
     Indication: Nausea
  27. CEFTAZIDIME [Concomitant]
     Active Substance: CEFTAZIDIME
     Route: 042
     Dates: start: 20200621, end: 20200622
  28. ENPOTT [Concomitant]
     Indication: Hyperkalaemia
     Route: 048
     Dates: start: 20200622, end: 20200625
  29. MAGNESIUM SULFATE [Concomitant]
     Active Substance: MAGNESIUM SULFATE
     Indication: Hypomagnesaemia
     Route: 042
     Dates: start: 20200622, end: 20200624
  30. AMLODIPINE BESYLATE [Concomitant]
     Active Substance: AMLODIPINE BESYLATE
     Indication: Blood pressure measurement
     Route: 048
     Dates: start: 20200621, end: 20200703
  31. CEFIXIME [Concomitant]
     Active Substance: CEFIXIME
     Indication: Urinary tract infection
     Route: 042
     Dates: start: 20200622, end: 20200623
  32. ZINC OXIDE [Concomitant]
     Active Substance: ZINC OXIDE
     Indication: Skin irritation
     Route: 061
     Dates: start: 20200623
  33. MAPENEM [Concomitant]
     Indication: Antibiotic therapy
     Route: 042
     Dates: start: 20200623, end: 20200702
  34. VANCIN-S [Concomitant]
     Indication: Antibiotic therapy
     Route: 042
     Dates: start: 20200623, end: 20200703
  35. LASIX [Concomitant]
     Active Substance: FUROSEMIDE
     Indication: Oedema
     Route: 058
     Dates: start: 20200623, end: 20200624
  36. LASIX [Concomitant]
     Active Substance: FUROSEMIDE
     Indication: Swelling
  37. ALBUMIN HUMAN [Concomitant]
     Active Substance: ALBUMIN HUMAN
     Indication: Hypovolaemia
     Route: 042
     Dates: start: 20200624, end: 20200624
  38. INVANZ [Concomitant]
     Active Substance: ERTAPENEM SODIUM
     Route: 042
     Dates: start: 20200629, end: 20200706
  39. FERROUS SULFATE [Concomitant]
     Active Substance: FERROUS SULFATE
     Route: 048
     Dates: start: 20200723
  40. FENOTEROL HYDROBROMIDE\IPRATROPIUM BROMIDE [Concomitant]
     Active Substance: FENOTEROL HYDROBROMIDE\IPRATROPIUM BROMIDE
  41. CHLORPHENIRAMINE MALEATE [Concomitant]
     Active Substance: CHLORPHENIRAMINE MALEATE
  42. CEF-4 (THAILAND) [Concomitant]
     Indication: Antibiotic therapy
     Route: 042
     Dates: start: 20200621, end: 20200622
  43. SARAPIN [Concomitant]
     Active Substance: SARRACENIA PURPUREA
     Route: 048
     Dates: start: 20201111, end: 20201112
  44. OREDA R.O. [Concomitant]
     Route: 048
     Dates: start: 20201111, end: 20201113
  45. METOCLOPRAMIDE [Concomitant]
     Active Substance: METOCLOPRAMIDE
     Route: 058
     Dates: start: 20201111, end: 20201113
  46. METOCLOPRAMIDE [Concomitant]
     Active Substance: METOCLOPRAMIDE
     Route: 042
     Dates: start: 20210211, end: 20210211
  47. LACTATED RINGERS SOLUTION [Concomitant]
     Active Substance: CALCIUM CHLORIDE\POTASSIUM CHLORIDE\SODIUM CHLORIDE\SODIUM LACTATE
     Route: 042
     Dates: start: 20201111, end: 20201111
  48. POTASSIUM CHLORIDE [Concomitant]
     Active Substance: POTASSIUM CHLORIDE
     Indication: Electrolyte imbalance
     Dosage: 15/FEB/2021
     Route: 042
     Dates: start: 20201111, end: 20201111
  49. SODIUM CHLORIDE [Concomitant]
     Active Substance: SODIUM CHLORIDE
     Route: 042
     Dates: start: 20201112, end: 20201112
  50. HEXETIDINE [Concomitant]
     Active Substance: HEXETIDINE
     Route: 061
     Dates: start: 20201113, end: 20201113
  51. UNSPECIFIED INGREDIENT [Concomitant]
     Active Substance: UNSPECIFIED INGREDIENT
     Indication: Hypophosphataemia
     Route: 048
     Dates: start: 20200620
  52. DOMPERIDONE [Concomitant]
     Active Substance: DOMPERIDONE
     Route: 048
     Dates: start: 20200620, end: 20200625
  53. INSULIN NOS [Concomitant]
     Active Substance: INSULIN NOS
     Dates: start: 20210216, end: 20210216
  54. ENOXAPARIN SODIUM [Concomitant]
     Active Substance: ENOXAPARIN SODIUM
     Indication: Embolism venous
     Route: 058
     Dates: start: 20210214, end: 20210217
  55. LEUKOCYTE POOR RED CELLS [Concomitant]
     Indication: Upper gastrointestinal haemorrhage
     Route: 042
     Dates: start: 20210210, end: 20210210

REACTIONS (9)
  - Acute kidney injury [Recovered/Resolved]
  - Diarrhoea [Recovered/Resolved]
  - Hyperglycaemia [Recovered/Resolved]
  - Diarrhoea [Recovered/Resolved]
  - Hypersensitivity [Recovered/Resolved]
  - Pyelonephritis [Recovered/Resolved]
  - Clostridium difficile colitis [Recovered/Resolved]
  - Diarrhoea [Recovered/Resolved]
  - Hyperglycaemia [Recovered/Resolved]

NARRATIVE: CASE EVENT DATE: 20200616
